FAERS Safety Report 11298665 (Version 1)
Quarter: 2015Q3

REPORT INFORMATION
  Report Type: Spontaneous
  Country: US (occurrence: US)
  Receive Date: 20150722
  Receipt Date: 20150722
  Transmission Date: 20151125
  Serious: No
  Sender: FDA-Public Use
  Company Number: US-ELI_LILLY_AND_COMPANY-US201202006624

PATIENT
  Sex: Female

DRUGS (2)
  1. VITAMINS [Concomitant]
     Active Substance: VITAMINS
  2. EVISTA [Suspect]
     Active Substance: RALOXIFENE HYDROCHLORIDE
     Indication: MENOPAUSE
     Dosage: UNK, QD

REACTIONS (6)
  - Macular degeneration [Unknown]
  - Gastrooesophageal reflux disease [Unknown]
  - Liver disorder [Recovered/Resolved]
  - Muscle spasms [Unknown]
  - Off label use [Recovered/Resolved]
  - Glaucoma [Unknown]
